FAERS Safety Report 9979539 (Version 1)
Quarter: 2014Q1

REPORT INFORMATION
  Report Type: Report from Study
  Country: US (occurrence: US)
  Receive Date: 20140306
  Receipt Date: 20140306
  Transmission Date: 20141002
  Serious: No
  Sender: FDA-Public Use
  Company Number: US-ABBVIE-13P-163-1171007-00

PATIENT
  Age: 55 Year
  Sex: Female

DRUGS (11)
  1. HUMIRA [Suspect]
     Indication: PSORIATIC ARTHROPATHY
     Dates: start: 201306
  2. HUMIRA [Suspect]
  3. LOPRESSOR [Concomitant]
     Indication: HYPERTENSION
  4. COZAAR [Concomitant]
     Indication: HYPERTENSION
  5. PREDNISONE [Concomitant]
     Indication: PAIN
     Dosage: 5 TO 10MG
  6. PRILOSEC [Concomitant]
     Indication: GASTROOESOPHAGEAL REFLUX DISEASE
  7. SYNTHROID [Concomitant]
     Indication: HYPOTHYROIDISM
  8. REGLAN [Concomitant]
     Indication: NAUSEA
     Dosage: IF ZOFRAN DOESN^T HELP.
  9. OXYCODONE [Concomitant]
     Indication: PAIN
     Dosage: EVERY 4 - 6 HOURS
  10. OXYCONTIN [Concomitant]
     Indication: PAIN MANAGEMENT
  11. ZOFRAN [Concomitant]
     Indication: NAUSEA

REACTIONS (3)
  - Inappropriate schedule of drug administration [Not Recovered/Not Resolved]
  - Pain [Not Recovered/Not Resolved]
  - Nausea [Not Recovered/Not Resolved]
